FAERS Safety Report 18325829 (Version 4)
Quarter: 2025Q3

REPORT INFORMATION
  Report Type: Spontaneous
  Country: CA (occurrence: CA)
  Receive Date: 20200929
  Receipt Date: 20250717
  Transmission Date: 20251021
  Serious: Yes (Other)
  Sender: ALEXION PHARMACEUTICALS
  Company Number: 2020SF24509

PATIENT
  Age: 75 Year
  Sex: Male

DRUGS (15)
  1. PULMICORT TURBUHALER [Suspect]
     Active Substance: BUDESONIDE
     Indication: Product used for unknown indication
     Dosage: 2 DOSAGE FORM, BID
     Dates: start: 201712
  2. SYMBICORT [Suspect]
     Active Substance: BUDESONIDE\FORMOTEROL FUMARATE DIHYDRATE
     Indication: Product used for unknown indication
     Dosage: DOSE 2 DF, FREQUENCY TWO TIMES A DAY
  3. BUDESONIDE\FORMOTEROL [Suspect]
     Active Substance: BUDESONIDE\FORMOTEROL
     Indication: Product used for unknown indication
  4. SYMBICORT [Suspect]
     Active Substance: BUDESONIDE\FORMOTEROL FUMARATE DIHYDRATE
     Indication: Product used for unknown indication
     Dosage: 2 PUFF,TWO TIMES A DAY
     Dates: start: 201711
  5. THEOPHYLLINE [Suspect]
     Active Substance: THEOPHYLLINE
     Indication: Product used for unknown indication
     Route: 065
  6. SINGULAIR [Suspect]
     Active Substance: MONTELUKAST SODIUM
     Indication: Product used for unknown indication
     Dosage: 10 MILLIGRAM, QD
     Dates: start: 201805
  7. ADVAIR HFA [Suspect]
     Active Substance: FLUTICASONE PROPIONATE\SALMETEROL XINAFOATE
     Indication: Product used for unknown indication
     Dosage: 2 DOSAGE FORM, BID
     Route: 065
     Dates: start: 201804
  8. CEPHALEXIN [Suspect]
     Active Substance: CEPHALEXIN
     Indication: Product used for unknown indication
     Dosage: 500 MILLIGRAM, QD
  9. FLOVENT [Suspect]
     Active Substance: FLUTICASONE PROPIONATE
     Indication: Product used for unknown indication
     Dosage: 1 DOSAGE FORM, BID
     Dates: start: 201804
  10. METRONIDAZOLE [Suspect]
     Active Substance: METRONIDAZOLE
     Indication: Product used for unknown indication
     Dosage: 250 MILLIGRAM, QD
     Dates: start: 201712
  11. PREDNISONE [Suspect]
     Active Substance: PREDNISONE
     Indication: Product used for unknown indication
     Route: 065
  12. ALBUTEROL [Suspect]
     Active Substance: ALBUTEROL
     Route: 065
  13. SPIRIVA [Suspect]
     Active Substance: TIOTROPIUM BROMIDE MONOHYDRATE
     Indication: Product used for unknown indication
     Route: 065
  14. ALBUTEROL [Suspect]
     Active Substance: ALBUTEROL
     Indication: Product used for unknown indication
  15. MONTELUKAST [Suspect]
     Active Substance: MONTELUKAST
     Indication: Product used for unknown indication
     Dosage: 10 MILLIGRAM, QD

REACTIONS (8)
  - Asthma [Unknown]
  - Full blood count abnormal [Unknown]
  - Chest discomfort [Unknown]
  - Dyspnoea exertional [Unknown]
  - Reversible airways obstruction [Unknown]
  - Weight increased [Unknown]
  - Wheezing [Unknown]
  - Cough [Unknown]

NARRATIVE: CASE EVENT DATE: 20180515
